FAERS Safety Report 7196986-5 (Version None)
Quarter: 2010Q4

REPORT INFORMATION
  Report Type: 
  Country: None (occurrence: None)
  Receive Date: 20101224
  Receipt Date: 20101215
  Transmission Date: 20110411
  Serious: Yes (Other)
  Sender: FDA-Public Use
  Company Number: JP-PFIZER INC-2010074506

PATIENT
  Sex: Male

DRUGS (2)
  1. XALATAN [Suspect]
     Indication: GLAUCOMA
     Dosage: 1 GTT, 1X/DAY
     Route: 047
     Dates: start: 20100601
  2. XALATAN [Suspect]
     Dosage: 1 GTT, 1X/DAY
     Route: 047
     Dates: start: 20101101

REACTIONS (2)
  - EYE IRRITATION [None]
  - HAEMOPTYSIS [None]
